FAERS Safety Report 20056936 (Version 2)
Quarter: 2022Q1

REPORT INFORMATION
  Report Type: Report from Study
  Country: US (occurrence: US)
  Receive Date: 20211111
  Receipt Date: 20220311
  Transmission Date: 20220423
  Serious: Yes (Hospitalization)
  Sender: FDA-Public Use
  Company Number: US-SECURA BIO, INC.-2021-SECUR-US003402

PATIENT
  Age: 48 Year
  Sex: Male
  Weight: 132.43 kg

DRUGS (3)
  1. DUVELISIB [Suspect]
     Active Substance: DUVELISIB
     Indication: Peripheral T-cell lymphoma unspecified
     Dosage: 75 MG, BID
     Route: 048
     Dates: start: 20210903, end: 20211010
  2. DUVELISIB [Suspect]
     Active Substance: DUVELISIB
     Dosage: 25 MG, BID
     Route: 048
  3. ROMIDEPSIN [Concomitant]
     Active Substance: ROMIDEPSIN
     Indication: Peripheral T-cell lymphoma unspecified
     Dosage: UNK
     Route: 065
     Dates: start: 20211021

REACTIONS (1)
  - Hypotension [Not Recovered/Not Resolved]

NARRATIVE: CASE EVENT DATE: 20211027
